FAERS Safety Report 5156932-2 (Version None)
Quarter: 2006Q4

REPORT INFORMATION
  Report Type: 
  Country: None (occurrence: None)
  Receive Date: 20061123
  Receipt Date: 20061116
  Transmission Date: 20070319
  Serious: Yes (Disabling)
  Sender: FDA-Public Use
  Company Number: JP-SP-2006-03169

PATIENT
  Age: 74 Year
  Sex: Male

DRUGS (11)
  1. IMMUCYST [Suspect]
     Indication: BLADDER CANCER
     Route: 043
     Dates: start: 20060526, end: 20060714
  2. IMMUCYST [Suspect]
     Route: 043
     Dates: start: 20060526, end: 20060714
  3. ASPIRIN [Suspect]
     Indication: ARTERIOSCLEROSIS OBLITERANS
     Route: 048
     Dates: start: 20050520, end: 20061116
  4. DICLOFENAC SODIUM [Concomitant]
     Route: 048
     Dates: start: 20050520, end: 20061116
  5. NAFTOPIDIL [Concomitant]
     Route: 048
     Dates: start: 20050520, end: 20061116
  6. FLAVOXATE HCL [Concomitant]
     Route: 048
     Dates: start: 20050520, end: 20061116
  7. FERROUS CITRATE [Concomitant]
     Route: 048
     Dates: start: 20050520, end: 20061116
  8. BENEXATE HYDROCHLORIDE BETADEX [Concomitant]
     Route: 048
     Dates: start: 20050520, end: 20061116
  9. ITOPRIDE HYDROCHLORIDE [Concomitant]
     Route: 048
     Dates: start: 20050520, end: 20061116
  10. DIGESTIVE ENZYME PREPARATIONS [Concomitant]
     Dosage: 3 CAPS/DAY
     Route: 048
     Dates: start: 20050520, end: 20061116
  11. ALLOPURINOL [Concomitant]
     Route: 048
     Dates: start: 20050520, end: 20061116

REACTIONS (2)
  - HAEMATURIA [None]
  - INCORRECT DOSE ADMINISTERED [None]
